FAERS Safety Report 17652854 (Version 4)
Quarter: 2021Q1

REPORT INFORMATION
  Report Type: Spontaneous
  Country: US (occurrence: US)
  Receive Date: 20200409
  Receipt Date: 20210128
  Transmission Date: 20210419
  Serious: Yes (Other)
  Sender: FDA-Public Use
  Company Number: US-PURDUE-USA-2020-0151289

PATIENT
  Sex: Male
  Weight: 89 kg

DRUGS (7)
  1. OXYCONTIN [Suspect]
     Active Substance: OXYCODONE HYDROCHLORIDE
     Indication: PAIN
     Dosage: 80 MG, ALMOST 100 A MONTH
     Route: 048
     Dates: start: 1998, end: 2003
  2. HYDROCODONE BITARTRATE AND ACETAMINOPHEN [Suspect]
     Active Substance: ACETAMINOPHEN\HYDROCODONE BITARTRATE
     Indication: PRODUCT USED FOR UNKNOWN INDICATION
     Dosage: 7.5?650 MG
     Route: 048
  3. HYDROCODONE BITARTRATE AND ACETAMINOPHEN [Suspect]
     Active Substance: ACETAMINOPHEN\HYDROCODONE BITARTRATE
     Dosage: 7.5?500 MG
  4. LORTAB [Suspect]
     Active Substance: ACETAMINOPHEN\HYDROCODONE BITARTRATE
     Indication: PRODUCT USED FOR UNKNOWN INDICATION
     Dosage: 7.5 OR 10 MG
     Route: 048
     Dates: start: 1987, end: 2017
  5. NORCO [Suspect]
     Active Substance: ACETAMINOPHEN\HYDROCODONE BITARTRATE
     Indication: PRODUCT USED FOR UNKNOWN INDICATION
     Dosage: UNKNOWN
     Route: 065
  6. CLONAZEPAM. [Concomitant]
     Active Substance: CLONAZEPAM
     Indication: ANXIETY
     Dosage: 2 MG, UNK
     Route: 048
  7. HYDROCODONE BITARTRATE AND ACETAMINOPHEN [Suspect]
     Active Substance: ACETAMINOPHEN\HYDROCODONE BITARTRATE
     Dosage: 10?500 MG

REACTIONS (16)
  - Overdose [Unknown]
  - Drug dependence [Recovering/Resolving]
  - Drug abuse [Recovered/Resolved]
  - Antisocial behaviour [Not Recovered/Not Resolved]
  - Formication [Recovered/Resolved]
  - Unevaluable event [Not Recovered/Not Resolved]
  - Brain injury [Not Recovered/Not Resolved]
  - Emotional poverty [Not Recovered/Not Resolved]
  - Illness [Recovered/Resolved]
  - Dyskinesia [Recovered/Resolved]
  - Euphoric mood [Recovering/Resolving]
  - Quality of life decreased [Not Recovered/Not Resolved]
  - Feeling abnormal [Recovering/Resolving]
  - Drug withdrawal syndrome [Recovered/Resolved]
  - General physical health deterioration [Recovering/Resolving]
  - Personality disorder [Recovering/Resolving]
